FAERS Safety Report 6952047-9 (Version None)
Quarter: 2010Q3

REPORT INFORMATION
  Report Type: 
  Country: None (occurrence: None)
  Receive Date: 20100829
  Receipt Date: 20100423
  Transmission Date: 20110219
  Serious: No
  Sender: FDA-Public Use
  Company Number: US-ABBOTT-10P-163-0640412-00

PATIENT
  Sex: Male
  Weight: 95.34 kg

DRUGS (6)
  1. NIASPAN [Suspect]
     Indication: PRODUCT USED FOR UNKNOWN INDICATION
     Dosage: 500 MG DAILY AT BEDTIME
     Dates: end: 20100416
  2. LIPITOR [Concomitant]
     Indication: PRODUCT USED FOR UNKNOWN INDICATION
  3. PLAVIX [Concomitant]
     Indication: PRODUCT USED FOR UNKNOWN INDICATION
  4. THYROID MEDICATION [Concomitant]
     Indication: PRODUCT USED FOR UNKNOWN INDICATION
  5. INSULIN [Concomitant]
     Indication: PRODUCT USED FOR UNKNOWN INDICATION
  6. LOTREL [Concomitant]
     Indication: PRODUCT USED FOR UNKNOWN INDICATION

REACTIONS (4)
  - GENERALISED ERYTHEMA [None]
  - MALAISE [None]
  - SENSORY DISTURBANCE [None]
  - SKIN BURNING SENSATION [None]
